FAERS Safety Report 6195528-0 (Version None)
Quarter: 2009Q2

REPORT INFORMATION
  Report Type: 
  Country: None (occurrence: None)
  Receive Date: 20090519
  Receipt Date: 20090508
  Transmission Date: 20091009
  Serious: Yes (Hospitalization)
  Sender: FDA-Public Use
  Company Number: PHHY2008JP26715

PATIENT
  Sex: Female

DRUGS (7)
  1. EXJADE [Suspect]
     Indication: IRON OVERLOAD
     Dosage: 1125 MG, DAILY
     Route: 048
     Dates: start: 20080627, end: 20080812
  2. EXJADE [Suspect]
     Dosage: 1125 MG, DAILY
     Route: 048
     Dates: start: 20080902, end: 20080912
  3. EXJADE [Suspect]
     Dosage: 1000 MG, DAILY
     Route: 048
     Dates: start: 20081212
  4. NEORAL [Suspect]
     Indication: IRON OVERLOAD
     Dosage: 100 MG, DAILY
     Route: 048
     Dates: start: 20080627, end: 20081227
  5. NEORAL [Suspect]
     Indication: MYELODYSPLASTIC SYNDROME
  6. DESFERAL [Concomitant]
     Dosage: 500MG
     Route: 030
     Dates: start: 20080201, end: 20080601
  7. RED BLOOD CELLS [Concomitant]
     Dosage: 4 UNITS EVERY THREE WEEKS
     Dates: start: 20080627, end: 20081227

REACTIONS (2)
  - C-REACTIVE PROTEIN INCREASED [None]
  - PYREXIA [None]
